FAERS Safety Report 22273281 (Version 2)
Quarter: 2024Q3

REPORT INFORMATION
  Report Type: Spontaneous
  Country: FR (occurrence: FR)
  Receive Date: 20230502
  Receipt Date: 20240812
  Transmission Date: 20241017
  Serious: Yes (Life-Threatening)
  Sender: RANBAXY
  Company Number: FR-SUN PHARMACEUTICAL INDUSTRIES LTD-2023RR-386522

PATIENT
  Age: 15 Year
  Sex: Female
  Weight: 80 kg

DRUGS (3)
  1. SERTRALINE [Suspect]
     Active Substance: SERTRALINE HYDROCHLORIDE
     Indication: Intentional overdose
     Dosage: UNK
     Route: 048
     Dates: start: 20211003, end: 20211003
  2. BROMAZEPAM [Suspect]
     Active Substance: BROMAZEPAM
     Indication: Intentional overdose
     Dosage: 138 MILLIGRAM, 23 TABS OF 6 MG
     Route: 048
     Dates: start: 20211003, end: 20211003
  3. TRIMEPRAZINE [Suspect]
     Active Substance: TRIMEPRAZINE
     Indication: Intentional overdose
     Dosage: 125 MILLIGRAM, IN TOTAL 1, 25 TABS OF 5 MG
     Route: 048
     Dates: start: 20211003, end: 20211003

REACTIONS (3)
  - Confusional state [Unknown]
  - Intentional overdose [Recovered/Resolved]
  - Somnolence [Unknown]

NARRATIVE: CASE EVENT DATE: 20211003
